APPROVED DRUG PRODUCT: BUTALBITAL, ACETAMINOPHEN AND CAFFEINE
Active Ingredient: ACETAMINOPHEN; BUTALBITAL; CAFFEINE
Strength: 300MG;50MG;40MG
Dosage Form/Route: CAPSULE;ORAL
Application: A212082 | Product #001 | TE Code: AA
Applicant: LANNETT CO INC
Approved: Dec 17, 2019 | RLD: No | RS: No | Type: RX